FAERS Safety Report 6182376-0 (Version None)
Quarter: 2009Q2

REPORT INFORMATION
  Report Type: 
  Country: None (occurrence: None)
  Receive Date: 20090505
  Receipt Date: 20090505
  Transmission Date: 20091009
  Serious: Yes (Hospitalization)
  Sender: FDA-Public Use
  Company Number: None

PATIENT
  Sex: Male
  Weight: 82.5 kg

DRUGS (3)
  1. ERBITUX [Suspect]
     Dosage: 487 MG
  2. TAXOL [Suspect]
     Dosage: 90 MG
  3. CARBOPLATIN [Suspect]
     Dosage: 200 MG

REACTIONS (2)
  - CARDIAC VENTRICULAR DISORDER [None]
  - PULMONARY EMBOLISM [None]
